FAERS Safety Report 5719477-4 (Version None)
Quarter: 2008Q2

REPORT INFORMATION
  Report Type: 
  Country: None (occurrence: None)
  Receive Date: 20080428
  Receipt Date: 20080424
  Transmission Date: 20081010
  Serious: Yes (Death)
  Sender: FDA-Public Use
  Company Number: US-GILEAD-2008-0016159

PATIENT
  Sex: Female

DRUGS (2)
  1. LETAIRIS [Suspect]
     Indication: PULMONARY HYPERTENSION
     Route: 048
     Dates: start: 20070701, end: 20070901
  2. VENTAVIS [Concomitant]

REACTIONS (3)
  - CARDIAC FAILURE CHRONIC [None]
  - COUGH [None]
  - LUNG DISORDER [None]
